FAERS Safety Report 16842898 (Version 1)
Quarter: 2019Q3

REPORT INFORMATION
  Report Type: Spontaneous
  Country: US (occurrence: US)
  Receive Date: 20190924
  Receipt Date: 20190924
  Transmission Date: 20191005
  Serious: No
  Sender: FDA-Public Use
  Company Number: US-TEVA-2019-US-1113666

PATIENT

DRUGS (1)
  1. AJOVY [Suspect]
     Active Substance: FREMANEZUMAB-VFRM
     Indication: MIGRAINE
     Route: 065
     Dates: start: 201812

REACTIONS (5)
  - Swelling [Unknown]
  - Pain [Unknown]
  - Vision blurred [Unknown]
  - Drug ineffective [Unknown]
  - Generalised erythema [Unknown]

NARRATIVE: CASE EVENT DATE: 20190914
